FAERS Safety Report 7904646-5 (Version None)
Quarter: 2011Q4

REPORT INFORMATION
  Report Type: 
  Country: None (occurrence: None)
  Receive Date: 20111109
  Receipt Date: 20111028
  Transmission Date: 20120403
  Serious: Yes (Congenital Anomaly)
  Sender: FDA-Public Use
  Company Number: US-GLAXOSMITHKLINE-A0950466A

PATIENT
  Sex: Female

DRUGS (4)
  1. ATENOLOL [Concomitant]
  2. UNKNOWN DRUG FOR ANXIETY [Concomitant]
  3. CLONIDINE [Concomitant]
  4. PAXIL [Suspect]
     Indication: DEPRESSION
     Dosage: 20MG UNKNOWN
     Route: 064

REACTIONS (2)
  - FOETAL EXPOSURE DURING PREGNANCY [None]
  - CARDIAC MURMUR [None]
